FAERS Safety Report 9703595 (Version 1)
Quarter: 2013Q4

REPORT INFORMATION
  Report Type: Spontaneous
  Country: US (occurrence: US)
  Receive Date: 20131122
  Receipt Date: 20131122
  Transmission Date: 20140711
  Serious: No
  Sender: FDA-Public Use
  Company Number: US-PFIZER INC-2013333172

PATIENT
  Age: 57 Year
  Sex: Female
  Weight: 80.73 kg

DRUGS (4)
  1. LYRICA [Suspect]
     Indication: FIBROMYALGIA
     Dosage: 100 MG, 3X/DAY
  2. LYRICA [Suspect]
     Indication: PAIN
     Dosage: 150 MG, 3X/DAY
  3. LYRICA [Suspect]
     Indication: SYSTEMIC LUPUS ERYTHEMATOSUS
  4. CELEBREX [Concomitant]
     Dosage: 200 MG, DAILY

REACTIONS (4)
  - Off label use [Unknown]
  - Drug intolerance [Unknown]
  - Feeling drunk [Not Recovered/Not Resolved]
  - Dizziness [Not Recovered/Not Resolved]
